FAERS Safety Report 23121749 (Version 2)
Quarter: 2023Q4

REPORT INFORMATION
  Report Type: Report from Study
  Country: US (occurrence: US)
  Receive Date: 20231030
  Receipt Date: 20231120
  Transmission Date: 20240110
  Serious: Yes (Hospitalization)
  Sender: FDA-Public Use
  Company Number: US-ABBVIE-5382428

PATIENT
  Age: 79 Year
  Sex: Female

DRUGS (7)
  1. IMBRUVICA [Suspect]
     Active Substance: IBRUTINIB
     Indication: Chronic lymphocytic leukaemia
     Route: 048
     Dates: end: 20230821
  2. IMBRUVICA [Suspect]
     Active Substance: IBRUTINIB
     Indication: Chronic lymphocytic leukaemia
     Dosage: FIRST ADMIN DATE WAS 2023
     Route: 048
  3. IMBRUVICA [Suspect]
     Active Substance: IBRUTINIB
     Indication: Chronic lymphocytic leukaemia
     Dosage: END DATE: 2022
     Route: 048
     Dates: start: 20220919
  4. IMBRUVICA [Suspect]
     Active Substance: IBRUTINIB
     Indication: Chronic lymphocytic leukaemia
     Route: 048
     Dates: start: 20221228
  5. IMBRUVICA [Suspect]
     Active Substance: IBRUTINIB
     Indication: Chronic lymphocytic leukaemia
     Route: 048
     Dates: start: 20201202
  6. TYLENOL [Suspect]
     Active Substance: ACETAMINOPHEN
     Indication: Product used for unknown indication
     Route: 065
  7. CODEINE [Suspect]
     Active Substance: CODEINE
     Indication: Product used for unknown indication
     Route: 065

REACTIONS (13)
  - Fall [Recovering/Resolving]
  - Constipation [Unknown]
  - Malaise [Recovering/Resolving]
  - Skin laceration [Unknown]
  - Contusion [Unknown]
  - Fatigue [Unknown]
  - Wound infection [Recovering/Resolving]
  - Dizziness [Unknown]
  - Musculoskeletal disorder [Unknown]
  - Back pain [Recovering/Resolving]
  - Contusion [Not Recovered/Not Resolved]
  - Spinal pain [Unknown]
  - Nausea [Unknown]

NARRATIVE: CASE EVENT DATE: 20230801
